FAERS Safety Report 6579688-5 (Version None)
Quarter: 2010Q1

REPORT INFORMATION
  Report Type: 
  Country: None (occurrence: None)
  Receive Date: 20100212
  Receipt Date: 20100202
  Transmission Date: 20100710
  Serious: No
  Sender: FDA-Public Use
  Company Number: GR-ROCHE-680844

PATIENT
  Age: 24 Year
  Sex: Female

DRUGS (1)
  1. ROACCUTAN [Suspect]
     Indication: ACNE
     Dosage: FORM: SOFT CAPS
     Route: 048
     Dates: start: 20100104, end: 20100105

REACTIONS (2)
  - NO ADVERSE EVENT [None]
  - PREGNANCY [None]
